FAERS Safety Report 8340176-7 (Version None)
Quarter: 2012Q2

REPORT INFORMATION
  Report Type: 
  Country: None (occurrence: None)
  Receive Date: 20120507
  Receipt Date: 20120109
  Transmission Date: 20120825
  Serious: Yes (Hospitalization)
  Sender: FDA-Public Use
  Company Number: US-ASTRAZENECA-2012SE02065

PATIENT
  Age: 26 Year
  Sex: Female
  Weight: 95.3 kg

DRUGS (2)
  1. VIMOVO [Suspect]
     Indication: ABDOMINAL PAIN
     Dosage: 375 MG / 20 MG, TWO TIMES A DAY
     Route: 048
  2. VIMOVO [Suspect]
     Dosage: 500 MG / 20 MG, TWO TIMES A DAY
     Route: 048

REACTIONS (3)
  - SWELLING [None]
  - OFF LABEL USE [None]
  - URTICARIA [None]
